FAERS Safety Report 6260714-8 (Version None)
Quarter: 2009Q3

REPORT INFORMATION
  Report Type: 
  Country: None (occurrence: None)
  Receive Date: 20090706
  Receipt Date: 20090619
  Transmission Date: 20100115
  Serious: Yes (Death)
  Sender: FDA-Public Use
  Company Number: 2008AL006670

PATIENT
  Age: 78 Year
  Sex: Female

DRUGS (10)
  1. DIGOXIN [Suspect]
     Indication: ARRHYTHMIA
     Dosage: 0.125MG, DAILY, PO
     Route: 048
  2. AMITRIPTYLINE HCL [Concomitant]
  3. PROPO-N/APAP [Concomitant]
  4. FOLIC ACID [Concomitant]
  5. BONIVA [Concomitant]
  6. MOVIPREP [Concomitant]
  7. CLOTRIM [Concomitant]
  8. LISINOPRIL [Concomitant]
  9. METRONIDAZOLE [Concomitant]
  10. CARVEDILOL [Concomitant]

REACTIONS (19)
  - ABDOMINAL PAIN [None]
  - ARTHRALGIA [None]
  - ASTHENIA [None]
  - BACK PAIN [None]
  - CARDIAC FAILURE CONGESTIVE [None]
  - CONFUSIONAL STATE [None]
  - DIARRHOEA [None]
  - DIZZINESS [None]
  - DYSPEPSIA [None]
  - FALL [None]
  - FATIGUE [None]
  - FEELING ABNORMAL [None]
  - LUNG NEOPLASM [None]
  - MENTAL STATUS CHANGES [None]
  - MUSCLE SPASMS [None]
  - NECK PAIN [None]
  - PNEUMONIA [None]
  - SWELLING [None]
  - THYROID DISORDER [None]
